FAERS Safety Report 8006392-9 (Version None)
Quarter: 2011Q4

REPORT INFORMATION
  Report Type: 
  Country: None (occurrence: None)
  Receive Date: 20111226
  Receipt Date: 20111219
  Transmission Date: 20120403
  Serious: Yes (Other)
  Sender: FDA-Public Use
  Company Number: PHEH2011US012093

PATIENT
  Age: 51 Year
  Sex: Male
  Weight: 92.971 kg

DRUGS (2)
  1. PULMOZYME [Concomitant]
  2. TOBI [Suspect]
     Dosage: 300 MG, BID
     Dates: start: 20110816

REACTIONS (1)
  - UPPER RESPIRATORY TRACT INFECTION [None]
